FAERS Safety Report 6651080-4 (Version None)
Quarter: 2010Q1

REPORT INFORMATION
  Report Type: 
  Country: None (occurrence: None)
  Receive Date: 20100323
  Receipt Date: 20100312
  Transmission Date: 20100710
  Serious: No
  Sender: FDA-Public Use
  Company Number: 20107986

PATIENT
  Sex: Female

DRUGS (1)
  1. LIORESAL [Suspect]
     Indication: MUSCLE SPASTICITY
     Dosage: 750 MCG, DAILY INTRATHECAL
     Route: 037

REACTIONS (6)
  - CATHETER SITE RELATED REACTION [None]
  - DIZZINESS POSTURAL [None]
  - DRUG INEFFECTIVE [None]
  - HYPOAESTHESIA [None]
  - PARAESTHESIA [None]
  - SEROMA [None]
